FAERS Safety Report 5206586-1 (Version None)
Quarter: 2007Q1

REPORT INFORMATION
  Report Type: 
  Country: None (occurrence: None)
  Receive Date: 20070109
  Receipt Date: 20061227
  Transmission Date: 20070707
  Serious: Yes (Hospitalization)
  Sender: FDA-Public Use
  Company Number: 2006BI011995

PATIENT
  Age: 53 Year
  Sex: Female

DRUGS (1)
  1. AVONEX [Suspect]
     Indication: MULTIPLE SCLEROSIS
     Dates: start: 20020412, end: 20060201

REACTIONS (6)
  - ASTHENIA [None]
  - AUTOMATIC BLADDER [None]
  - CONDITION AGGRAVATED [None]
  - HEADACHE [None]
  - PAIN [None]
  - PROGRESSIVE MULTIPLE SCLEROSIS [None]
